FAERS Safety Report 5558012-0 (Version None)
Quarter: 2007Q4

REPORT INFORMATION
  Report Type: 
  Country: None (occurrence: None)
  Receive Date: 20071211
  Receipt Date: 20071204
  Transmission Date: 20080405
  Serious: Yes (Hospitalization)
  Sender: FDA-Public Use
  Company Number: 2007SP024384

PATIENT
  Age: 62 Year
  Sex: Male

DRUGS (6)
  1. PEG-INTRON [Suspect]
     Indication: HEPATITIS C
     Dosage: 80 MCG;QW;SC
     Route: 058
     Dates: start: 20070312, end: 20071119
  2. REBETOL [Suspect]
     Indication: HEPATITIS C
     Dosage: 600 MG;QD;PO
     Route: 048
     Dates: start: 20070312, end: 20071119
  3. BLOPRESS [Concomitant]
  4. LIVACT [Concomitant]
  5. RANITIDINE HCL [Concomitant]
  6. HYDROCHLORIDE [Concomitant]

REACTIONS (1)
  - MENINGITIS [None]
